FAERS Safety Report 11744675 (Version 1)
Quarter: 2015Q4

REPORT INFORMATION
  Report Type: Other
  Country: US (occurrence: SE)
  Receive Date: 20151116
  Receipt Date: 20151116
  Transmission Date: 20160304
  Serious: Yes (Other)
  Sender: FDA-Public Use
  Company Number: SE-CUMBERLAND PHARMACEUTICALS INC.-1044260

PATIENT
  Sex: Female

DRUGS (3)
  1. CALDOLOR [Suspect]
     Active Substance: IBUPROFEN
     Indication: ARTHRALGIA
     Route: 065
  2. CLEMASTINE FUMARATE. [Concomitant]
     Active Substance: CLEMASTINE FUMARATE
     Route: 030
  3. BETAMETHASONE DIPROPIONATE. [Concomitant]
     Active Substance: BETAMETHASONE DIPROPIONATE
     Route: 061
     Dates: start: 20131101

REACTIONS (4)
  - Chronic obstructive pulmonary disease [None]
  - Pleural effusion [None]
  - Pericardial effusion [None]
  - Hypocomplementaemia [None]
